FAERS Safety Report 4409541-4 (Version None)
Quarter: 2004Q3

REPORT INFORMATION
  Report Type: 
  Country: None (occurrence: None)
  Receive Date: 20040723
  Receipt Date: 20040223
  Transmission Date: 20050211
  Serious: Yes (Death, Hospitalization)
  Sender: FDA-Public Use
  Company Number: US-JNJFOC-20040605023

PATIENT
  Age: 40 Year
  Sex: Male

DRUGS (1)
  1. TYLENOL [Suspect]
     Indication: DRUG USE FOR UNKNOWN INDICATION
     Dosage: ORAL
     Route: 048
     Dates: start: 20040217

REACTIONS (3)
  - DIFFICULTY IN WALKING [None]
  - LETHARGY [None]
  - OVERDOSE [None]
